FAERS Safety Report 19726544 (Version 1)
Quarter: 2021Q3

REPORT INFORMATION
  Report Type: Spontaneous
  Country: US (occurrence: US)
  Receive Date: 20210819
  Receipt Date: 20210819
  Transmission Date: 20211014
  Serious: No
  Sender: FDA-Public Use
  Company Number: None

PATIENT
  Sex: Female

DRUGS (1)
  1. MYCOPHENOLATE 250MG ACCORD HEALTHCARE [Suspect]
     Active Substance: MYCOPHENOLIC ACID
     Indication: PANNICULITIS
     Route: 048
     Dates: start: 202107

REACTIONS (6)
  - Stomatitis [None]
  - Gingival pain [None]
  - Throat irritation [None]
  - Gingival bleeding [None]
  - Vertigo [None]
  - Insomnia [None]
